FAERS Safety Report 9473186 (Version 2)
Quarter: 2013Q3

REPORT INFORMATION
  Report Type: Spontaneous
  Country: US (occurrence: US)
  Receive Date: 20130823
  Receipt Date: 20130823
  Transmission Date: 20140515
  Serious: No
  Sender: FDA-Public Use
  Company Number: US-BRISTOL-MYERS SQUIBB COMPANY-18736710

PATIENT
  Age: 70 Year
  Sex: Male
  Weight: 86.17 kg

DRUGS (9)
  1. SPRYCEL [Suspect]
     Indication: CHRONIC MYELOID LEUKAEMIA
     Dosage: ONGOING
     Route: 048
     Dates: start: 20121002
  2. ASPIRIN [Concomitant]
     Route: 048
  3. CETIRIZINE [Concomitant]
     Route: 048
  4. FLUTICASONE [Concomitant]
     Dosage: 1DF = 2 SPRAYS
     Route: 045
  5. LEVOTHYROXINE [Concomitant]
     Route: 048
  6. LISINOPRIL [Concomitant]
     Route: 048
  7. MELATONIN [Concomitant]
     Route: 048
  8. PRAVASTATINE [Concomitant]
     Route: 048
  9. TEMAZEPAM [Concomitant]
     Route: 048

REACTIONS (6)
  - Bronchitis [Unknown]
  - Fatigue [Unknown]
  - Immune system disorder [Unknown]
  - Diplopia [Not Recovered/Not Resolved]
  - Dyspnoea [Unknown]
  - Dizziness [Unknown]
